FAERS Safety Report 7797630-6 (Version None)
Quarter: 2011Q4

REPORT INFORMATION
  Report Type: 
  Country: None (occurrence: None)
  Receive Date: 20111005
  Receipt Date: 20110920
  Transmission Date: 20120403
  Serious: Yes (Other)
  Sender: FDA-Public Use
  Company Number: GB-WATSON-2011-15078

PATIENT
  Age: 72 Year
  Sex: Female

DRUGS (1)
  1. SIMVASTATIN [Suspect]
     Indication: PRODUCT USED FOR UNKNOWN INDICATION
     Dosage: 10 MG Q HS

REACTIONS (4)
  - DECREASED APPETITE [None]
  - ANHEDONIA [None]
  - FEELING OF DESPAIR [None]
  - MYALGIA [None]
